FAERS Safety Report 8473466-8 (Version None)
Quarter: 2012Q2

REPORT INFORMATION
  Report Type: 
  Country: None (occurrence: None)
  Receive Date: 20120622
  Receipt Date: 20120622
  Transmission Date: 20120825
  Serious: Yes (Hospitalization)
  Sender: FDA-Public Use
  Company Number: None

PATIENT
  Sex: Female
  Weight: 65.2 kg

DRUGS (2)
  1. CYTARABINE [Suspect]
     Dosage: 40800 MG
  2. ELSPAR [Suspect]
     Dosage: 20000 MG

REACTIONS (6)
  - ASPERGILLUS TEST POSITIVE [None]
  - FEBRILE NEUTROPENIA [None]
  - ESCHERICHIA BACTERAEMIA [None]
  - PNEUMONIA [None]
  - HYDROPNEUMOTHORAX [None]
  - BONE MARROW FAILURE [None]
